FAERS Safety Report 18932645 (Version 8)
Quarter: 2022Q2

REPORT INFORMATION
  Report Type: Report from Study
  Country: US (occurrence: US)
  Receive Date: 20210224
  Receipt Date: 20220407
  Transmission Date: 20220720
  Serious: Yes (Hospitalization)
  Sender: FDA-Public Use
  Company Number: US-NOVARTISTESTPH-NVSC2021US036663

PATIENT
  Age: 3 Year
  Sex: Male
  Weight: 27 kg

DRUGS (2)
  1. ILARIS [Suspect]
     Active Substance: CANAKINUMAB
     Indication: Pyrexia
     Dosage: 100 MG, EVERY 4 WEEKS
     Route: 058
     Dates: start: 202010
  2. ILARIS [Suspect]
     Active Substance: CANAKINUMAB
     Dosage: 150 MG, EVERY 4 WEEKS
     Route: 058
     Dates: start: 20201114

REACTIONS (5)
  - Illness [Recovering/Resolving]
  - Failure to thrive [Unknown]
  - Eating disorder [Unknown]
  - Weight abnormal [Unknown]
  - Incorrect dose administered [Unknown]

NARRATIVE: CASE EVENT DATE: 20211101
